FAERS Safety Report 6166467-6 (Version None)
Quarter: 2009Q2

REPORT INFORMATION
  Report Type: 
  Country: None (occurrence: None)
  Receive Date: 20090424
  Receipt Date: 20090410
  Transmission Date: 20091009
  Serious: Yes (Hospitalization)
  Sender: FDA-Public Use
  Company Number: JP-PFIZER INC-2009197072

PATIENT

DRUGS (5)
  1. IRINOTECAN HCL [Suspect]
     Indication: COLON CANCER
     Dosage: 121 MG, UNK
     Route: 042
     Dates: start: 20081022
  2. ERBITUX [Suspect]
     Indication: COLON CANCER
     Dosage: 636 MG, ONCE WEEKLY
     Route: 042
     Dates: start: 20081022, end: 20081022
  3. ERBITUX [Suspect]
     Dosage: 400 MG, 1 IN 1 WK
     Route: 042
     Dates: start: 20081029, end: 20081225
  4. POLARAMINE [Concomitant]
     Indication: PREMEDICATION
     Dosage: 5 MG, 1 IN 1 WK
     Route: 042
     Dates: start: 20081022, end: 20081225
  5. DECADRON [Concomitant]
     Indication: PREMEDICATION
     Dosage: 8 MG, 1 IN 1 WK
     Route: 042
     Dates: start: 20081022, end: 20081225

REACTIONS (2)
  - PNEUMONIA FUNGAL [None]
  - PYREXIA [None]
